FAERS Safety Report 7691613-2 (Version None)
Quarter: 2011Q3

REPORT INFORMATION
  Report Type: 
  Country: None (occurrence: None)
  Receive Date: 20110818
  Receipt Date: 20110816
  Transmission Date: 20111222
  Serious: Yes (Life-Threatening)
  Sender: FDA-Public Use
  Company Number: CHPA2011US09224

PATIENT
  Sex: Female

DRUGS (3)
  1. THYROXIN [Concomitant]
     Indication: THYROID DISORDER
     Dosage: UNK
     Route: 048
  2. VOLTAREN [Suspect]
     Indication: OSTEOARTHRITIS
     Dosage: PEARL SIZE, ONCE
     Route: 061
     Dates: start: 20110711, end: 20110711
  3. ALEVE [Concomitant]
     Indication: PAIN
     Dosage: UNK
     Route: 048

REACTIONS (7)
  - OEDEMA PERIPHERAL [None]
  - SWELLING FACE [None]
  - DYSARTHRIA [None]
  - DYSPNOEA [None]
  - PRURITUS [None]
  - UNDERDOSE [None]
  - ANAPHYLACTIC REACTION [None]
